FAERS Safety Report 6000574-3 (Version None)
Quarter: 2008Q4

REPORT INFORMATION
  Report Type: 
  Country: None (occurrence: None)
  Receive Date: 20081215
  Receipt Date: 20081208
  Transmission Date: 20090506
  Serious: Yes (Congenital Anomaly)
  Sender: FDA-Public Use
  Company Number: DE-AVENTIS-200813193DE

PATIENT
  Age: 0 Day
  Sex: Female
  Weight: 0.74 kg

DRUGS (1)
  1. ARAVA [Suspect]
     Dosage: DOSE: NOT REPORTED
     Route: 064

REACTIONS (5)
  - DRUG EXPOSURE DURING PREGNANCY [None]
  - INFANTILE APNOEIC ATTACK [None]
  - PATENT DUCTUS ARTERIOSUS [None]
  - SKELETON DYSPLASIA [None]
  - SMALL FOR DATES BABY [None]
